FAERS Safety Report 4964720-2 (Version None)
Quarter: 2006Q2

REPORT INFORMATION
  Report Type: 
  Country: None (occurrence: None)
  Receive Date: 20060406
  Receipt Date: 20060329
  Transmission Date: 20061013
  Serious: Yes (Hospitalization)
  Sender: FDA-Public Use
  Company Number: CM-MERCK-0603USA04417

PATIENT
  Age: 28 Year
  Sex: Male

DRUGS (1)
  1. MECTIZAN [Suspect]
     Route: 048
     Dates: start: 20050507, end: 20050507

REACTIONS (5)
  - ARTHRALGIA [None]
  - ASTHENIA [None]
  - BONE PAIN [None]
  - DIARRHOEA [None]
  - MYALGIA [None]
